FAERS Safety Report 6432752-3 (Version None)
Quarter: 2009Q4

REPORT INFORMATION
  Report Type: 
  Country: None (occurrence: None)
  Receive Date: 20091109
  Receipt Date: 20091102
  Transmission Date: 20100525
  Serious: Yes (Hospitalization)
  Sender: FDA-Public Use
  Company Number: US-ROXANE LABORATORIES, INC.-2009-RO-01117RO

PATIENT
  Age: 52 Year
  Sex: Female

DRUGS (7)
  1. LORAZEPAM [Suspect]
     Indication: AGITATION
     Dosage: 12 MG
     Route: 042
  2. LORAZEPAM [Suspect]
     Dosage: 16 MG
  3. LITHIUM CARBONATE [Suspect]
     Dosage: 150 MG
     Route: 048
  4. ZIPRASIDONE HCL [Suspect]
     Indication: AGITATION
     Dosage: 40 MG
     Route: 048
  5. HALOPERIDOL [Suspect]
     Indication: AGITATION
     Dosage: 15 MG
     Route: 042
  6. THIOTHIXINE [Suspect]
     Dosage: 10 MG
     Route: 048
  7. OXYGEN [Concomitant]

REACTIONS (7)
  - AGITATION [None]
  - CHRONIC OBSTRUCTIVE PULMONARY DISEASE [None]
  - DELIRIUM [None]
  - DRUG INEFFECTIVE [None]
  - HYPERCAPNIA [None]
  - RESPIRATORY ACIDOSIS [None]
  - WEANING FAILURE [None]
